FAERS Safety Report 18124148 (Version 1)
Quarter: 2020Q3

REPORT INFORMATION
  Report Type: Spontaneous
  Country: US (occurrence: US)
  Receive Date: 20200807
  Receipt Date: 20200807
  Transmission Date: 20201103
  Serious: Yes (Hospitalization, Other)
  Sender: FDA-Public Use
  Company Number: US-HIKMA PHARMACEUTICALS USA INC.-US-H14001-20-03503

PATIENT
  Age: 60 Year
  Sex: Female
  Weight: 50.4 kg

DRUGS (11)
  1. MIDAZOLAM. [Suspect]
     Active Substance: MIDAZOLAM
     Indication: ANAESTHESIA
     Route: 042
  2. FLUMAZENIL. [Concomitant]
     Active Substance: FLUMAZENIL
     Indication: PRODUCT USED FOR UNKNOWN INDICATION
     Route: 042
  3. BUPIVACAINE. [Concomitant]
     Active Substance: BUPIVACAINE
     Indication: SURGERY
     Route: 065
  4. PAROXETINE. [Concomitant]
     Active Substance: PAROXETINE
     Indication: PRODUCT USED FOR UNKNOWN INDICATION
     Dosage: UNKNOWN
     Route: 065
  5. FENTANYL. [Concomitant]
     Active Substance: FENTANYL
     Indication: ANAESTHESIA
     Route: 065
  6. DILTIAZEM. [Concomitant]
     Active Substance: DILTIAZEM
     Indication: PRODUCT USED FOR UNKNOWN INDICATION
     Dosage: UNKNOWN
     Route: 065
  7. OMEPRAZOLE. [Concomitant]
     Active Substance: OMEPRAZOLE
     Indication: PRODUCT USED FOR UNKNOWN INDICATION
     Dosage: UNKNOWN
     Route: 065
  8. BUPROPION. [Concomitant]
     Active Substance: BUPROPION
     Indication: PRODUCT USED FOR UNKNOWN INDICATION
     Dosage: UNKNOWN
     Route: 065
  9. VALSARTAN. [Concomitant]
     Active Substance: VALSARTAN
     Indication: PRODUCT USED FOR UNKNOWN INDICATION
     Dosage: UNKNOWN
     Route: 065
  10. ALBUTEROL INHALER [Concomitant]
     Active Substance: ALBUTEROL
     Indication: PRODUCT USED FOR UNKNOWN INDICATION
     Dosage: UNKNOWN
     Route: 065
  11. BUPIVACAINE. [Concomitant]
     Active Substance: BUPIVACAINE
     Route: 065

REACTIONS (3)
  - Speech disorder [Recovered/Resolved]
  - Disorientation [Recovered/Resolved]
  - Extrapyramidal disorder [Recovered/Resolved]
